FAERS Safety Report 18176178 (Version 3)
Quarter: 2020Q4

REPORT INFORMATION
  Report Type: Spontaneous
  Country: US (occurrence: US)
  Receive Date: 20200820
  Receipt Date: 20201009
  Transmission Date: 20210113
  Serious: No
  Sender: FDA-Public Use
  Company Number: US-BIOGEN-2020BI00912192

PATIENT
  Age: 49 Year
  Sex: Female

DRUGS (3)
  1. TYSABRI [Suspect]
     Active Substance: NATALIZUMAB
     Dosage: 50 INFUSIONS
     Route: 042
     Dates: start: 20160506, end: 20200228
  2. MAVENCLAD [Concomitant]
     Active Substance: CLADRIBINE
     Indication: PRODUCT USED FOR UNKNOWN INDICATION
     Route: 065
     Dates: start: 202007
  3. TYSABRI [Suspect]
     Active Substance: NATALIZUMAB
     Indication: MULTIPLE SCLEROSIS
     Dosage: 11 INFUSIONS
     Route: 042
     Dates: start: 20150226, end: 20151203

REACTIONS (1)
  - Rebound effect [Unknown]

NARRATIVE: CASE EVENT DATE: 20200610
